FAERS Safety Report 21018344 (Version 1)
Quarter: 2022Q2

REPORT INFORMATION
  Report Type: Spontaneous
  Country: JP (occurrence: JP)
  Receive Date: 20220628
  Receipt Date: 20220628
  Transmission Date: 20220721
  Serious: Yes (Hospitalization)
  Sender: FDA-Public Use
  Company Number: JP-TEVA-2022-JP-2049768

PATIENT
  Age: 78 Year
  Sex: Female
  Weight: 34.5 kg

DRUGS (3)
  1. PREDNISOLONE [Suspect]
     Active Substance: PREDNISOLONE
     Indication: Microscopic polyangiitis
     Dosage: 7 MILLIGRAM DAILY;
     Route: 065
  2. CYCLOPHOSPHAMIDE [Suspect]
     Active Substance: CYCLOPHOSPHAMIDE
     Indication: Microscopic polyangiitis
     Route: 042
  3. MIZORIBINE [Suspect]
     Active Substance: MIZORIBINE
     Indication: Microscopic polyangiitis
     Dosage: 150 MILLIGRAM DAILY;
     Route: 065

REACTIONS (2)
  - Herpes zoster disseminated [Recovering/Resolving]
  - Varicella zoster pneumonia [Recovering/Resolving]
